FAERS Safety Report 8050291-3 (Version None)
Quarter: 2012Q1

REPORT INFORMATION
  Report Type: 
  Country: None (occurrence: None)
  Receive Date: 20120117
  Receipt Date: 20120113
  Transmission Date: 20120608
  Serious: Yes (Death, Hospitalization)
  Sender: FDA-Public Use
  Company Number: US-B.I. PHARMACEUTICALS,INC./RIDGEFIELD-2011-BP-27956BP

PATIENT
  Age: 94 Year
  Sex: Male

DRUGS (6)
  1. FISH OIL [Concomitant]
  2. VITAMIN B-12 [Concomitant]
  3. POTASSIUM CHLORIDE [Concomitant]
  4. PRADAXA [Suspect]
     Indication: ATRIAL FIBRILLATION
     Dosage: 300 MG
     Route: 048
  5. DILTIAZEM HCL [Concomitant]
  6. MULTI-VITAMIN [Concomitant]

REACTIONS (3)
  - COMA [None]
  - HAEMORRHAGE INTRACRANIAL [None]
  - HEADACHE [None]
